FAERS Safety Report 6568184-7 (Version None)
Quarter: 2010Q1

REPORT INFORMATION
  Report Type: 
  Country: None (occurrence: None)
  Receive Date: 20100203
  Receipt Date: 20100126
  Transmission Date: 20100710
  Serious: Yes (Hospitalization)
  Sender: FDA-Public Use
  Company Number: US-ROCHE-554378

PATIENT
  Sex: Female
  Weight: 88 kg

DRUGS (18)
  1. TOCILIZUMAB [Suspect]
     Indication: RHEUMATOID ARTHRITIS
     Dosage: DOSAGE FORM: 100 ML. TEMPORARILY INTERRUPTED.
     Route: 042
     Dates: start: 20070109, end: 20080303
  2. TOCILIZUMAB [Suspect]
     Dosage: LAST DOSE PRIOR TO SAE:08 DECEMBER 2009, DOSAGE FORM: 100 ML
     Route: 042
     Dates: start: 20080109
  3. TOCILIZUMAB [Suspect]
     Dosage: AS PER PROTOCOL 8 MG/KG, 1 EVERY 4 WEEKS.
     Route: 042
     Dates: start: 20080701
  4. TOCILIZUMAB [Suspect]
     Route: 042
     Dates: start: 20080923
  5. TOCILIZUMAB [Suspect]
     Dosage: END OF THE STUDY
     Route: 042
  6. METHOTREXATE [Suspect]
     Indication: DRUG USE FOR UNKNOWN INDICATION
     Route: 065
     Dates: start: 20071205, end: 20080315
  7. METHOTREXATE [Suspect]
     Route: 065
     Dates: start: 20080414, end: 20080514
  8. METHOTREXATE [Suspect]
     Route: 065
     Dates: start: 20091016
  9. FOLIC ACID [Concomitant]
     Dates: start: 19991003
  10. PREDNISONE [Concomitant]
     Dates: start: 20070331, end: 20080317
  11. PREDNISONE [Concomitant]
     Dates: start: 20091010
  12. OMEPRAZOLE [Concomitant]
     Dates: start: 20070401
  13. IBUPROFEN [Concomitant]
     Dates: start: 20061101
  14. TYLENOL-500 [Concomitant]
     Dosage: DRUG REPORTED AS: TYLENOL ARTHRITIS STRENGTH.
     Dates: start: 20070127
  15. LEVOFLOXACIN [Concomitant]
     Dates: start: 20080313, end: 20080316
  16. NORCO [Concomitant]
     Dosage: FREQUENCY: Q 4-6 HRS PRN, DRUG NAME: NORCO 51325
     Dates: start: 20090728
  17. DARVOCET [Concomitant]
     Dosage: DRUG NAME: DARVOCET 100, FREQUENCY: Q 4-6 HRS PRN
     Dates: start: 20060726
  18. NORVASC [Concomitant]
     Dates: start: 20091208

REACTIONS (2)
  - INTERSTITIAL LUNG DISEASE [None]
  - PNEUMONIA [None]
